FAERS Safety Report 13098990 (Version 2)
Quarter: 2017Q1

REPORT INFORMATION
  Report Type: Spontaneous
  Country: IE (occurrence: IE)
  Receive Date: 20170109
  Receipt Date: 20170116
  Transmission Date: 20170428
  Serious: No
  Sender: FDA-Public Use
  Company Number: IE-JNJFOC-20170104564

PATIENT
  Sex: Female

DRUGS (6)
  1. STELARA [Suspect]
     Active Substance: USTEKINUMAB
     Indication: PSORIASIS
     Route: 058
     Dates: start: 20151223
  2. ELTROXIN [Concomitant]
     Active Substance: LEVOTHYROXINE
     Route: 050
  3. STELARA [Suspect]
     Active Substance: USTEKINUMAB
     Indication: PSORIASIS
     Route: 058
  4. LYRICA [Concomitant]
     Active Substance: PREGABALIN
     Route: 050
  5. ROSUVA [Concomitant]
     Active Substance: ROSUVASTATIN CALCIUM
     Route: 050
  6. COVERSYL [Concomitant]
     Active Substance: PERINDOPRIL
     Route: 050

REACTIONS (4)
  - Psoriasis [Not Recovered/Not Resolved]
  - Drug effect decreased [Not Recovered/Not Resolved]
  - Product use issue [Unknown]
  - Off label use [Unknown]
